FAERS Safety Report 11440938 (Version 1)
Quarter: 2015Q3

REPORT INFORMATION
  Report Type: Spontaneous
  Country: US (occurrence: US)
  Receive Date: 20150821
  Receipt Date: 20150821
  Transmission Date: 20151125
  Serious: No
  Sender: FDA-Public Use
  Company Number: US-ELI_LILLY_AND_COMPANY-US200711002769

PATIENT
  Sex: Male

DRUGS (1)
  1. CYMBALTA [Suspect]
     Active Substance: DULOXETINE HYDROCHLORIDE
     Dosage: 30 MG, UNKNOWN
     Route: 048
     Dates: start: 200711

REACTIONS (2)
  - Hangover [Unknown]
  - Euphoric mood [Unknown]

NARRATIVE: CASE EVENT DATE: 200711
